FAERS Safety Report 4644940-7 (Version None)
Quarter: 2005Q2

REPORT INFORMATION
  Report Type: 
  Country: None (occurrence: None)
  Receive Date: 20050422
  Receipt Date: 20050406
  Transmission Date: 20051028
  Serious: Yes (Life-Threatening, Hospitalization)
  Sender: FDA-Public Use
  Company Number: 354687

PATIENT
  Age: 58 Year
  Sex: Female
  Weight: 100 kg

DRUGS (10)
  1. TRASTUZUMAB (TRASTUZUMAB) [Suspect]
     Indication: BREAST CANCER
     Dosage: 2 MG/KG 1 PER WEEK INTRAVENOUS
     Route: 042
     Dates: start: 20030729
  2. CAELYX (DOXORUBICIN HYDROCHLORIDE) [Suspect]
     Indication: BREAST CANCER
     Dosage: 50 MG/M2 1 PER 4 WEEK INTRAVENOUS
     Route: 042
     Dates: start: 20030728, end: 20031124
  3. NAVELBINE [Suspect]
     Indication: BREAST CANCER METASTATIC
     Dosage: 50 MG DAILY INTRAVENOUS
     Route: 042
     Dates: start: 20031222, end: 20031222
  4. HYDROCHLOROTHIAZIDE [Concomitant]
  5. ATENOLOL [Concomitant]
  6. DIAZEPAM [Concomitant]
  7. CELEBREX [Concomitant]
  8. SOLU-CORTEF [Concomitant]
  9. BENADRYL [Concomitant]
  10. FUROSEMIDE [Concomitant]

REACTIONS (17)
  - ACTIVATED PARTIAL THROMBOPLASTIN TIME PROLONGED [None]
  - BLOOD PRESSURE INCREASED [None]
  - CARDIAC ARREST [None]
  - CARDIAC FAILURE CONGESTIVE [None]
  - CARDIOTOXICITY [None]
  - CATHETER SITE PAIN [None]
  - COUGH [None]
  - DYSPNOEA [None]
  - FEELING ABNORMAL [None]
  - HYPERHIDROSIS [None]
  - HYPOKALAEMIA [None]
  - INFUSION RELATED REACTION [None]
  - LIVEDO RETICULARIS [None]
  - POST PROCEDURAL COMPLICATION [None]
  - PULMONARY OEDEMA [None]
  - RESPIRATORY DISTRESS [None]
  - SKIN TOXICITY [None]
